FAERS Safety Report 6173984-1 (Version None)
Quarter: 2009Q2

REPORT INFORMATION
  Report Type: 
  Country: None (occurrence: None)
  Receive Date: 20090430
  Receipt Date: 20090420
  Transmission Date: 20091009
  Serious: Yes (Hospitalization)
  Sender: FDA-Public Use
  Company Number: FR-PFIZER INC-2006068387

PATIENT

DRUGS (6)
  1. SUNITINIB MALATE [Suspect]
     Indication: NON-SMALL CELL LUNG CANCER
     Dosage: FREQUENCY: 1/DAY
     Route: 048
     Dates: start: 20060418, end: 20060515
  2. NEURONTIN [Concomitant]
     Route: 048
     Dates: start: 20060424
  3. RIVOTRIL [Concomitant]
     Route: 048
     Dates: start: 20060424
  4. VOLTAREN [Concomitant]
     Dosage: 100 MG,NIGHT AND DAY
     Route: 048
     Dates: start: 20060424
  5. SOLUPRED [Concomitant]
     Dosage: UNK
     Dates: start: 20060424
  6. DURAGESIC-100 [Concomitant]
     Route: 062
     Dates: start: 20060424

REACTIONS (6)
  - ANOREXIA [None]
  - ANXIETY [None]
  - ASTHENIA [None]
  - BACK PAIN [None]
  - HAEMORRHAGE [None]
  - VOMITING [None]
